FAERS Safety Report 7302296-5 (Version None)
Quarter: 2011Q1

REPORT INFORMATION
  Report Type: 
  Country: None (occurrence: None)
  Receive Date: 20110218
  Receipt Date: 20110214
  Transmission Date: 20110831
  Serious: Yes (Other)
  Sender: FDA-Public Use
  Company Number: GB-PFIZER INC-2011033256

PATIENT
  Age: 32 Year
  Sex: Male

DRUGS (2)
  1. EPANUTIN [Suspect]
     Dosage: 300 MG, 1X/DAY EVERY NIGHT
  2. PERBORATE [Concomitant]
     Dosage: UNK

REACTIONS (1)
  - PRIAPISM [None]
